FAERS Safety Report 23478623 (Version 1)
Quarter: 2024Q1

REPORT INFORMATION
  Report Type: Report from Study
  Country: US (occurrence: US)
  Receive Date: 20240205
  Receipt Date: 20240205
  Transmission Date: 20240410
  Serious: No
  Sender: FDA-Public Use
  Company Number: US-EXELIXIS-CABO-23068138

PATIENT
  Age: 42 Year
  Sex: Male

DRUGS (1)
  1. CABOMETYX [Suspect]
     Active Substance: CABOZANTINIB S-MALATE
     Indication: Malignant neoplasm of renal pelvis
     Dosage: 60 MG, QD
     Route: 048

REACTIONS (19)
  - Blood pressure increased [Unknown]
  - Blood potassium decreased [Unknown]
  - Erythema [Unknown]
  - Rash papular [Unknown]
  - Oral discomfort [Unknown]
  - Scrotal dermatitis [Unknown]
  - Pruritus [Unknown]
  - Fatigue [Unknown]
  - Nausea [Unknown]
  - Diarrhoea [Unknown]
  - Muscle spasms [Unknown]
  - Feeling hot [Unknown]
  - Burning sensation [Unknown]
  - Anorectal discomfort [Unknown]
  - Pain of skin [Unknown]
  - Blood glucose fluctuation [Unknown]
  - Candida infection [Unknown]
  - Insomnia [Unknown]
  - Off label use [Unknown]

NARRATIVE: CASE EVENT DATE: 20230924
